FAERS Safety Report 15428193 (Version 3)
Quarter: 2018Q4

REPORT INFORMATION
  Report Type: Spontaneous
  Country: JP (occurrence: JP)
  Receive Date: 20180926
  Receipt Date: 20181018
  Transmission Date: 20190204
  Serious: Yes (Other)
  Sender: FDA-Public Use
  Company Number: JP-009507513-1809JPN002127J

PATIENT
  Age: 65 Year
  Sex: Male

DRUGS (5)
  1. AMBROXOL HYDROCHLORIDE [Concomitant]
     Active Substance: AMBROXOL HYDROCHLORIDE
     Indication: PRODUCTIVE COUGH
     Dosage: UNK, TID
     Route: 048
     Dates: start: 201710
  2. SINGULAIR [Suspect]
     Active Substance: MONTELUKAST SODIUM
     Indication: RHINITIS ALLERGIC
     Dosage: 10 MG, QD
     Route: 048
     Dates: start: 201710, end: 201710
  3. NIPOLAZIN [Concomitant]
     Indication: RHINITIS ALLERGIC
     Dosage: 3 MG, TID
     Route: 048
     Dates: start: 201710
  4. CLARITH [Concomitant]
     Active Substance: CLARITHROMYCIN
     Dosage: 200 MG, BID
     Route: 048
     Dates: start: 201010
  5. HUSTAZOL [Concomitant]
     Active Substance: CLOPERASTINE
     Indication: COUGH
     Dosage: 10 MG, TID
     Route: 048
     Dates: start: 201710

REACTIONS (1)
  - Drug-induced liver injury [Recovered/Resolved]

NARRATIVE: CASE EVENT DATE: 20171102
